FAERS Safety Report 21890119 (Version 4)
Quarter: 2024Q1

REPORT INFORMATION
  Report Type: Spontaneous
  Country: US (occurrence: US)
  Receive Date: 20230120
  Receipt Date: 20240325
  Transmission Date: 20240410
  Serious: No
  Sender: FDA-Public Use
  Company Number: US-PFIZER INC-202300026401

PATIENT
  Age: 66 Year
  Sex: Female

DRUGS (2)
  1. XELJANZ [Suspect]
     Active Substance: TOFACITINIB CITRATE
     Indication: Colitis ulcerative
     Dosage: 5 MG, DAILY
     Route: 048
  2. XELJANZ [Suspect]
     Active Substance: TOFACITINIB CITRATE
     Dosage: 5 MG, 2X/DAY
     Route: 048

REACTIONS (8)
  - Muscle disorder [Unknown]
  - Fatigue [Unknown]
  - Pain [Unknown]
  - Blood creatine phosphokinase increased [Unknown]
  - Condition aggravated [Unknown]
  - Stress [Unknown]
  - White blood cell count increased [Unknown]
  - Off label use [Unknown]
